FAERS Safety Report 21194789 (Version 1)
Quarter: 2022Q3

REPORT INFORMATION
  Report Type: Spontaneous
  Country: DE (occurrence: DE)
  Receive Date: 20220810
  Receipt Date: 20220810
  Transmission Date: 20221027
  Serious: Yes (Hospitalization, Other)
  Sender: FDA-Public Use
  Company Number: None

PATIENT
  Age: 34 Year
  Sex: Female

DRUGS (5)
  1. CHORIOGONADOTROPIN ALFA [Suspect]
     Active Substance: CHORIOGONADOTROPIN ALFA
     Indication: Assisted reproductive technology
     Dosage: 12TH CYCLE DAY
     Route: 058
  2. GONAL-F [Suspect]
     Active Substance: FOLLITROPIN
     Indication: Assisted reproductive technology
     Dosage: 3RD-7TH CYCLE DAY
     Route: 058
  3. GONAL-F [Suspect]
     Active Substance: FOLLITROPIN
     Dosage: 8TH-11TH CYCLE DAY
     Route: 058
  4. GANIRELIX ACETATE [Suspect]
     Active Substance: GANIRELIX ACETATE
     Indication: Assisted reproductive technology
     Dosage: 7TH-11TH CYCLE DAY
  5. PROGESTERONE [Suspect]
     Active Substance: PROGESTERONE
     Indication: Assisted reproductive technology
     Dosage: 15TH-32ND CYCLE DAY

REACTIONS (3)
  - Haematoma [Recovered/Resolved]
  - Abdominal pain lower [Recovered/Resolved]
  - Ovarian hyperstimulation syndrome [Recovered/Resolved]

NARRATIVE: CASE EVENT DATE: 20220701
